FAERS Safety Report 6216911-0 (Version None)
Quarter: 2009Q2

REPORT INFORMATION
  Report Type: 
  Country: None (occurrence: None)
  Receive Date: 20090604
  Receipt Date: 20090604
  Transmission Date: 20091009
  Serious: Yes (Other)
  Sender: FDA-Public Use
  Company Number: TPA2009A00380

PATIENT
  Age: 40 Year
  Sex: Female

DRUGS (2)
  1. ACTOS [Suspect]
     Indication: DRUG USE FOR UNKNOWN INDICATION
     Dosage: PER ORAL
     Route: 048
  2. UNKNOWN BIRTH CONTROL MEDICATION (ALL OTHER THERAPEUTIC PRODUCTS( [Concomitant]
     Indication: CONTRACEPTION

REACTIONS (3)
  - ABORTION SPONTANEOUS [None]
  - DRUG EXPOSURE DURING PREGNANCY [None]
  - THROMBOSIS [None]
